APPROVED DRUG PRODUCT: QUESTRAN
Active Ingredient: CHOLESTYRAMINE
Strength: EQ 800MG RESIN
Dosage Form/Route: TABLET;ORAL
Application: A073403 | Product #002
Applicant: APOTHECON INC DIV BRISTOL MYERS SQUIBB
Approved: Dec 27, 1999 | RLD: No | RS: No | Type: DISCN